FAERS Safety Report 11534607 (Version 1)
Quarter: 2015Q3

REPORT INFORMATION
  Report Type: Report from Study
  Country: DE (occurrence: DE)
  Receive Date: 20150922
  Receipt Date: 20150922
  Transmission Date: 20151125
  Serious: Yes (Life-Threatening, Other)
  Sender: FDA-Public Use
  Company Number: DE-ROCHE-ITM201404IM005393

PATIENT
  Age: 56 Year
  Sex: Male
  Weight: 87 kg

DRUGS (23)
  1. OXYGEN. [Concomitant]
     Active Substance: OXYGEN
     Dosage: UNIT DOSE: 15 LITERS/MINUTE
     Route: 065
     Dates: start: 20140608, end: 20140620
  2. NOVAMINSULFON [Concomitant]
     Active Substance: METAMIZOLE
     Indication: MUSCULOSKELETAL CHEST PAIN
     Route: 065
     Dates: start: 20140419, end: 20140620
  3. KLACID (GERMANY) [Concomitant]
     Indication: PAIN
     Route: 065
     Dates: start: 20140609, end: 20140611
  4. PIRFENIDONE [Suspect]
     Active Substance: PIRFENIDONE
     Indication: IDIOPATHIC PULMONARY FIBROSIS
     Dosage: 2403 MG
     Route: 048
     Dates: start: 20140324, end: 20140519
  5. ACETYLCYSTEIN [Concomitant]
     Active Substance: ACETYLCYSTEINE
     Route: 065
     Dates: start: 20140610, end: 20140620
  6. DECORTIN [Concomitant]
     Active Substance: PREDNISONE
     Route: 065
     Dates: end: 20140612
  7. HYLO-COMOD [Concomitant]
     Indication: DRY EYE
     Route: 065
     Dates: end: 20140620
  8. TAZOBAC [Concomitant]
     Active Substance: PIPERACILLIN SODIUM\TAZOBACTAM SODIUM
     Indication: ANTIBIOTIC PROPHYLAXIS
     Route: 065
     Dates: start: 20140317, end: 20140326
  9. ACETYLCYSTEIN [Concomitant]
     Active Substance: ACETYLCYSTEINE
     Indication: SECRETION DISCHARGE
     Route: 065
     Dates: start: 20140319, end: 20140609
  10. KYTTA-SALBE F [Concomitant]
     Indication: ARTHRALGIA
     Dosage: UNIT DOSE: 3 DOSAGE FORMS
     Route: 065
     Dates: end: 20140620
  11. VIGANTOLETTEN [Concomitant]
     Active Substance: CHOLECALCIFEROL
     Indication: PROPHYLAXIS
     Route: 065
     Dates: start: 20140319, end: 20140620
  12. DECORTIN [Concomitant]
     Active Substance: PREDNISONE
     Route: 065
     Dates: start: 20140613, end: 20140620
  13. CLEXANE [Concomitant]
     Active Substance: ENOXAPARIN SODIUM
     Indication: THROMBOSIS PROPHYLAXIS
     Route: 065
     Dates: start: 20140609, end: 20140620
  14. KLACID (GERMANY) [Concomitant]
     Route: 065
     Dates: start: 20140317, end: 20140324
  15. DECORTIN [Concomitant]
     Active Substance: PREDNISONE
     Indication: IDIOPATHIC PULMONARY FIBROSIS
     Route: 065
     Dates: start: 20140321, end: 20140410
  16. METAMIZOLE SODIUM [Concomitant]
     Active Substance: METAMIZOLE SODIUM
     Indication: INFLAMMATORY PAIN
     Route: 065
     Dates: start: 20140609, end: 20140611
  17. FOLSAN [Concomitant]
     Active Substance: FOLIC ACID
     Indication: VITAMIN SUPPLEMENTATION
     Route: 065
     Dates: start: 20140516, end: 20140620
  18. CORNEREGEL [Concomitant]
     Active Substance: DEXPANTHENOL
     Indication: DRY EYE
     Route: 065
     Dates: end: 20140620
  19. TAZOBAC [Concomitant]
     Active Substance: PIPERACILLIN SODIUM\TAZOBACTAM SODIUM
     Indication: PRODUCT USED FOR UNKNOWN INDICATION
     Route: 065
     Dates: start: 20140609, end: 20140613
  20. PANTOPRAZOLE SODIUM. [Concomitant]
     Active Substance: PANTOPRAZOLE SODIUM
     Indication: PROPHYLAXIS
     Route: 065
     Dates: start: 20140319, end: 20140620
  21. DECORTIN [Concomitant]
     Active Substance: PREDNISONE
     Route: 065
     Dates: start: 20140411
  22. OXYGEN. [Concomitant]
     Active Substance: OXYGEN
     Indication: IDIOPATHIC PULMONARY FIBROSIS
     Dosage: UNIT DOSE: 5 LITERS/MINUTE
     Route: 065
     Dates: start: 20140319, end: 20140607
  23. BACTRIM [Concomitant]
     Active Substance: SULFAMETHOXAZOLE\TRIMETHOPRIM
     Indication: ANTIBIOTIC PROPHYLAXIS
     Route: 065
     Dates: start: 20140516, end: 20140620

REACTIONS (3)
  - Syncope [Recovered/Resolved]
  - Alanine aminotransferase increased [Recovered/Resolved]
  - Fall [Recovered/Resolved]

NARRATIVE: CASE EVENT DATE: 20140331
